FAERS Safety Report 21871962 (Version 1)
Quarter: 2023Q1

REPORT INFORMATION
  Report Type: Report from Study
  Country: FR (occurrence: FR)
  Receive Date: 20230117
  Receipt Date: 20230117
  Transmission Date: 20230417
  Serious: Yes (Other)
  Sender: FDA-Public Use
  Company Number: FR-MYLANLABS-2022M1141565

PATIENT
  Age: 25 Year
  Sex: Female

DRUGS (5)
  1. LINEZOLID [Suspect]
     Active Substance: LINEZOLID
     Indication: Tuberculosis
     Dosage: UNK
     Route: 065
  2. AMIKACIN [Concomitant]
     Active Substance: AMIKACIN
     Indication: Tuberculosis
     Dosage: UNK
     Route: 065
  3. PYRAZINAMIDE [Concomitant]
     Active Substance: PYRAZINAMIDE
     Indication: Tuberculosis
     Dosage: UNK
     Route: 065
  4. MOXIFLOXACIN [Concomitant]
     Active Substance: MOXIFLOXACIN
     Indication: Tuberculosis
     Dosage: UNK
     Route: 065
  5. CLOFAZIMINE [Concomitant]
     Active Substance: CLOFAZIMINE
     Indication: Tuberculosis
     Dosage: UNK
     Route: 065

REACTIONS (1)
  - Haemolytic anaemia [Unknown]
